FAERS Safety Report 20179150 (Version 1)
Quarter: 2021Q4

REPORT INFORMATION
  Report Type: Spontaneous
  Country: GB (occurrence: GB)
  Receive Date: 20211214
  Receipt Date: 20211214
  Transmission Date: 20220303
  Serious: Yes (Other)
  Sender: FDA-Public Use
  Company Number: GB-JNJFOC-20211212027

PATIENT
  Age: 22 Year
  Sex: Female

DRUGS (1)
  1. ACETAMINOPHEN [Suspect]
     Active Substance: ACETAMINOPHEN
     Indication: Vomiting
     Dosage: HABITUALLY TAKING BETWEEN 10 AND 20 TABLETS OF PARACETAMOL ON A WEEKLY BASIS TO INDUCE VOMITING
     Route: 065

REACTIONS (5)
  - Drug abuse [Unknown]
  - Poisoning deliberate [Unknown]
  - Intentional overdose [Unknown]
  - Nausea [Unknown]
  - Vomiting [Unknown]
